FAERS Safety Report 13274651 (Version 11)
Quarter: 2019Q4

REPORT INFORMATION
  Report Type: Report from Study
  Country: CO (occurrence: CO)
  Receive Date: 20170227
  Receipt Date: 20191212
  Transmission Date: 20200122
  Serious: Yes (Death, Hospitalization, Other)
  Sender: FDA-Public Use
  Company Number: CO-INCYTE CORPORATION-2017IN001081

PATIENT

DRUGS (7)
  1. ASPIRIN. [Concomitant]
     Active Substance: ASPIRIN
     Indication: PRODUCT USED FOR UNKNOWN INDICATION
     Dosage: 1 DF, QD
     Route: 048
  2. IPRATROPIUM BROMIDE. [Concomitant]
     Active Substance: IPRATROPIUM BROMIDE
     Indication: PRODUCT USED FOR UNKNOWN INDICATION
     Dosage: 2 DF (PUFF), QD
     Route: 065
  3. GEMFIBROZIL. [Concomitant]
     Active Substance: GEMFIBROZIL
     Indication: BLOOD TRIGLYCERIDES ABNORMAL
     Dosage: 600 MG, QD
     Route: 048
  4. AMLODIPINE [Concomitant]
     Active Substance: AMLODIPINE BESYLATE
     Indication: HYPERTENSION
     Dosage: 5 MG, BID
     Route: 048
  5. JAKAVI [Suspect]
     Active Substance: RUXOLITINIB
     Indication: MYELOFIBROSIS
     Dosage: 30 MG, QD
     Route: 048
     Dates: start: 20161101
  6. JAKAVI [Suspect]
     Active Substance: RUXOLITINIB
     Dosage: 15 MG, Q12H
     Route: 048
     Dates: start: 20161202
  7. ALLOPURINOL. [Concomitant]
     Active Substance: ALLOPURINOL
     Indication: PRODUCT USED FOR UNKNOWN INDICATION
     Dosage: 100 MG, QD
     Route: 065

REACTIONS (24)
  - Pyrexia [Unknown]
  - Malaise [Unknown]
  - Abdominal distension [Unknown]
  - Back pain [Unknown]
  - Dyspnoea [Unknown]
  - Fatigue [Unknown]
  - Bone pain [Unknown]
  - Tuberculosis [Unknown]
  - Discomfort [Unknown]
  - Oxygen consumption decreased [Recovering/Resolving]
  - Death [Fatal]
  - Oxygen saturation decreased [Unknown]
  - Asphyxia [Unknown]
  - Chronic obstructive pulmonary disease [Unknown]
  - Gastritis [Unknown]
  - Abdominal pain upper [Unknown]
  - Hypertension [Unknown]
  - Inappropriate schedule of product administration [Unknown]
  - Pneumonia [Unknown]
  - Acute respiratory failure [Unknown]
  - Splenitis [Unknown]
  - Abdominal pain [Recovered/Resolved]
  - Flatulence [Recovering/Resolving]
  - Abdominal discomfort [Unknown]

NARRATIVE: CASE EVENT DATE: 201702
